FAERS Safety Report 23067084 (Version 4)
Quarter: 2025Q1

REPORT INFORMATION
  Report Type: Report from Study
  Country: CA (occurrence: CA)
  Receive Date: 20231016
  Receipt Date: 20250320
  Transmission Date: 20250408
  Serious: Yes (Other)
  Sender: TAKEDA
  Company Number: CA-TAKEDA-2022TUS079006

PATIENT
  Sex: Female

DRUGS (5)
  1. VEDOLIZUMAB [Suspect]
     Active Substance: VEDOLIZUMAB
     Indication: Colitis ulcerative
  2. PANTOPRAZOLE [Concomitant]
     Active Substance: PANTOPRAZOLE
  3. PREDNISONE [Concomitant]
     Active Substance: PREDNISONE
  4. PENTASA [Concomitant]
     Active Substance: MESALAMINE
  5. IRON [Concomitant]
     Active Substance: IRON

REACTIONS (2)
  - Haematochezia [Unknown]
  - Frequent bowel movements [Unknown]
